FAERS Safety Report 10263023 (Version 2)
Quarter: 2014Q2

REPORT INFORMATION
  Report Type: Report from Study
  Country: US (occurrence: US)
  Receive Date: 20140626
  Receipt Date: 20140626
  Transmission Date: 20141212
  Serious: Yes (Death)
  Sender: FDA-Public Use
  Company Number: US-MYLANLABS-2013S1027098

PATIENT
  Age: 66 Year
  Sex: Male

DRUGS (6)
  1. CLOZAPINE TABLETS [Suspect]
     Indication: SCHIZOPHRENIA
     Route: 048
     Dates: start: 20130112
  2. ABILIFY [Concomitant]
  3. TYLENOL [Concomitant]
  4. BENZOTROPINE [Concomitant]
  5. DUONEB [Concomitant]
  6. PREDNISONE [Concomitant]

REACTIONS (1)
  - Pneumonia [Fatal]
